FAERS Safety Report 10438839 (Version 1)
Quarter: 2014Q3

REPORT INFORMATION
  Report Type: Spontaneous
  Country: US (occurrence: US)
  Receive Date: 20140908
  Receipt Date: 20140908
  Transmission Date: 20150326
  Serious: No
  Sender: FDA-Public Use
  Company Number: US-BRISTOL-MYERS SQUIBB COMPANY-21180385

PATIENT
  Age: 55 Year
  Sex: Female
  Weight: 65.76 kg

DRUGS (2)
  1. WELLBUTRIN [Concomitant]
     Active Substance: BUPROPION HYDROCHLORIDE
  2. ABILIFY [Suspect]
     Active Substance: ARIPIPRAZOLE

REACTIONS (4)
  - Muscle twitching [Unknown]
  - Anxiety [Unknown]
  - Nausea [Unknown]
  - Psychomotor hyperactivity [Unknown]
